FAERS Safety Report 6550719-1 (Version None)
Quarter: 2010Q1

REPORT INFORMATION
  Report Type: 
  Country: None (occurrence: None)
  Receive Date: 20100125
  Receipt Date: 20100111
  Transmission Date: 20100710
  Serious: Yes (Hospitalization, Other)
  Sender: FDA-Public Use
  Company Number: PHHY2009MX48993

PATIENT
  Age: 64 Year
  Sex: Female

DRUGS (6)
  1. DIOVAN HCT [Suspect]
     Indication: HYPERTENSION
     Dosage: 1 TABLET (160/12.5 MG) DAILY
     Route: 048
     Dates: start: 20020501, end: 20091002
  2. DIOVAN HCT [Suspect]
     Dosage: 1 TABLET (160/12.5MG) PER DAY
     Route: 048
     Dates: start: 20091020
  3. NORVASC [Concomitant]
     Dosage: UNK
     Dates: start: 20091002
  4. PRAZOSIN HYDROCHLORIDE [Concomitant]
     Dosage: UNK
     Dates: start: 20091002
  5. LYRICA [Concomitant]
     Dosage: UNK
  6. CYMBALTA [Concomitant]
     Dosage: UNK

REACTIONS (10)
  - AMNESIA [None]
  - BLINDNESS [None]
  - BLOOD PRESSURE DECREASED [None]
  - DECREASED APPETITE [None]
  - DEPRESSED LEVEL OF CONSCIOUSNESS [None]
  - DIABETES MELLITUS [None]
  - FATIGUE [None]
  - HYPERGLYCAEMIA [None]
  - NEUROPATHY PERIPHERAL [None]
  - OEDEMA PERIPHERAL [None]
